FAERS Safety Report 10298414 (Version 8)
Quarter: 2015Q3

REPORT INFORMATION
  Report Type: Spontaneous
  Country: US (occurrence: US)
  Receive Date: 20140711
  Receipt Date: 20150731
  Transmission Date: 20151125
  Serious: Yes (Hospitalization, Other)
  Sender: FDA-Public Use
  Company Number: US-SA-2014SA089965

PATIENT
  Age: 56 Year
  Sex: Female
  Weight: 121.63 kg

DRUGS (36)
  1. PLAVIX [Suspect]
     Active Substance: CLOPIDOGREL BISULFATE
     Indication: TRANSIENT ISCHAEMIC ATTACK
     Route: 048
     Dates: start: 200305, end: 20120108
  2. TYLENOL [Concomitant]
     Active Substance: ACETAMINOPHEN
  3. FLUPHENAZINE [Concomitant]
     Active Substance: FLUPHENAZINE
     Indication: DEPRESSION
  4. DILANTIN [Concomitant]
     Active Substance: PHENYTOIN
  5. PROTONIX [Concomitant]
     Active Substance: PANTOPRAZOLE SODIUM
  6. LIDOCAINE. [Concomitant]
     Active Substance: LIDOCAINE
     Dosage: 4 % INJECTION 3 ML
     Dates: start: 20110721
  7. SYMBICORT [Concomitant]
     Active Substance: BUDESONIDE\FORMOTEROL FUMARATE DIHYDRATE
     Indication: ASTHMA
  8. ASPIRIN. [Concomitant]
     Active Substance: ASPIRIN
  9. PRAVASTATIN [Concomitant]
     Active Substance: PRAVASTATIN\PRAVASTATIN SODIUM
     Indication: BLOOD CHOLESTEROL INCREASED
  10. PHENYTOIN. [Concomitant]
     Active Substance: PHENYTOIN
     Indication: SEIZURE
  11. DAYPRO [Concomitant]
     Active Substance: OXAPROZIN
  12. ACTOPLUS MET [Concomitant]
     Active Substance: METFORMIN HYDROCHLORIDE\PIOGLITAZONE HYDROCHLORIDE
     Dosage: DOSE: 15/850 MG
  13. NAPROSYN [Concomitant]
     Active Substance: NAPROXEN
  14. DIOVAN [Concomitant]
     Active Substance: VALSARTAN
     Route: 048
  15. MORPHINE [Concomitant]
     Active Substance: MORPHINE
  16. ALBUTEROL. [Concomitant]
     Active Substance: ALBUTEROL
  17. ABILIFY [Concomitant]
     Active Substance: ARIPIPRAZOLE
     Indication: DEPRESSION
  18. ZOLOFT [Concomitant]
     Active Substance: SERTRALINE HYDROCHLORIDE
  19. ATARAX [Concomitant]
     Active Substance: HYDROXYZINE\HYDROXYZINE HYDROCHLORIDE
     Route: 048
  20. ACTOS [Concomitant]
     Active Substance: PIOGLITAZONE HYDROCHLORIDE
  21. PROAIR HFA [Concomitant]
     Active Substance: ALBUTEROL SULFATE
  22. KLONOPIN [Concomitant]
     Active Substance: CLONAZEPAM
  23. FERROUS SULFATE [Concomitant]
     Active Substance: FERROUS SULFATE\FERROUS SULFATE, DRIED
  24. SERTRALINE [Concomitant]
     Active Substance: SERTRALINE HYDROCHLORIDE
     Indication: DEPRESSION
  25. KLONOPIN [Concomitant]
     Active Substance: CLONAZEPAM
  26. RESTORIL [Concomitant]
     Active Substance: TEMAZEPAM
  27. NEO-SYNEPHRINE [Concomitant]
     Active Substance: PHENYLEPHRINE HYDROCHLORIDE
     Dosage: 1 % NASAL DROPS
     Dates: start: 20110721
  28. LOSARTAN. [Concomitant]
     Active Substance: LOSARTAN
     Indication: HYPERTENSION
  29. PLAVIX [Suspect]
     Active Substance: CLOPIDOGREL BISULFATE
     Indication: CEREBROVASCULAR ACCIDENT
     Route: 048
     Dates: start: 200305, end: 20120108
  30. PANTOPRAZOLE SODIUM. [Concomitant]
     Active Substance: PANTOPRAZOLE SODIUM
  31. CLONAZEPAM. [Concomitant]
     Active Substance: CLONAZEPAM
  32. CLONAZEPAM. [Concomitant]
     Active Substance: CLONAZEPAM
     Indication: DEPRESSION
  33. SYMBICORT [Concomitant]
     Active Substance: BUDESONIDE\FORMOTEROL FUMARATE DIHYDRATE
     Indication: ASTHMA
     Dosage: DOSE:1 PUFF(S)
  34. MELOXICAM. [Concomitant]
     Active Substance: MELOXICAM
  35. PIOGLITAZONE HYDROCHLORIDE/METFORMIN HYDROCHLORIDE [Concomitant]
     Indication: DIABETES MELLITUS
     Dosage: STRENGTH: 850/15 MG
  36. VYTORIN [Concomitant]
     Active Substance: EZETIMIBE\SIMVASTATIN
     Dosage: DOSE: 10/20 MG

REACTIONS (2)
  - Gastrointestinal haemorrhage [Recovered/Resolved]
  - Multiple injuries [Not Recovered/Not Resolved]

NARRATIVE: CASE EVENT DATE: 20120108
